FAERS Safety Report 20108238 (Version 2)
Quarter: 2022Q1

REPORT INFORMATION
  Report Type: Report from Study
  Country: US (occurrence: US)
  Receive Date: 20211124
  Receipt Date: 20220319
  Transmission Date: 20220423
  Serious: No
  Sender: FDA-Public Use
  Company Number: US-NOVARTISTESTPH-NVSC2021US268908

PATIENT
  Sex: Female

DRUGS (1)
  1. KESIMPTA [Suspect]
     Active Substance: OFATUMUMAB
     Indication: Product used for unknown indication
     Dosage: UNK
     Route: 065
     Dates: start: 20211119

REACTIONS (6)
  - Pain [Recovered/Resolved]
  - Swelling of eyelid [Recovered/Resolved]
  - Ear swelling [Recovered/Resolved]
  - Urticaria [Recovered/Resolved]
  - Pyrexia [Recovered/Resolved]
  - Influenza [Recovered/Resolved]
